FAERS Safety Report 5657458-X (Version None)
Quarter: 2008Q1

REPORT INFORMATION
  Report Type: 
  Country: None (occurrence: None)
  Receive Date: 20080310
  Receipt Date: 20080226
  Transmission Date: 20080703
  Serious: Yes (Other)
  Sender: FDA-Public Use
  Company Number: US-ELI_LILLY_AND_COMPANY-US200803001553

PATIENT
  Age: 85 Year
  Sex: Female

DRUGS (1)
  1. EVISTA [Suspect]
     Indication: OSTEOPOROSIS
     Dosage: 60 MG, DAILY (1/D)
     Dates: start: 20010101

REACTIONS (4)
  - HOT FLUSH [None]
  - RASH MACULAR [None]
  - ROAD TRAFFIC ACCIDENT [None]
  - TYMPANIC MEMBRANE PERFORATION [None]
